FAERS Safety Report 14237090 (Version 2)
Quarter: 2018Q1

REPORT INFORMATION
  Report Type: Spontaneous
  Country: US (occurrence: US)
  Receive Date: 20171129
  Receipt Date: 20180208
  Transmission Date: 20180508
  Serious: No
  Sender: FDA-Public Use
  Company Number: US-JNJFOC-20171119074

PATIENT
  Age: 66 Year
  Sex: Female
  Weight: 66.23 kg

DRUGS (1)
  1. TYLENOL EXTRA STRENGTH [Suspect]
     Active Substance: ACETAMINOPHEN
     Indication: ARTHRALGIA
     Dosage: 2-3 GELS PER DAY
     Route: 065

REACTIONS (4)
  - Peripheral swelling [Unknown]
  - Incorrect dose administered [Unknown]
  - Pain in extremity [Unknown]
  - Product packaging issue [Unknown]
